FAERS Safety Report 4784586-3 (Version None)
Quarter: 2005Q3

REPORT INFORMATION
  Report Type: 
  Country: None (occurrence: None)
  Receive Date: 20050928
  Receipt Date: 20050914
  Transmission Date: 20060218
  Serious: Yes (Death, Life-Threatening, Other)
  Sender: FDA-Public Use
  Company Number: USA0509108461

PATIENT
  Sex: Female

DRUGS (1)
  1. NPH ILETIN I (BEEF-PORK) [Suspect]

REACTIONS (3)
  - CAESAREAN SECTION [None]
  - DRUG EXPOSURE DURING PREGNANCY [None]
  - IMMATURE RESPIRATORY SYSTEM [None]
